FAERS Safety Report 4567198-6 (Version None)
Quarter: 2005Q1

REPORT INFORMATION
  Report Type: 
  Country: None (occurrence: None)
  Receive Date: 20050201
  Receipt Date: 20050110
  Transmission Date: 20050727
  Serious: Yes (Hospitalization)
  Sender: FDA-Public Use
  Company Number: FR-GLAXOSMITHKLINE-B0363886A

PATIENT
  Age: 38 Year
  Sex: Female
  Weight: 75 kg

DRUGS (8)
  1. WELLVONE [Suspect]
     Dosage: 750MG TWICE PER DAY
     Route: 048
     Dates: start: 20041126, end: 20050103
  2. COMBIVIR [Suspect]
     Indication: HIV INFECTION
     Dosage: 2TAB PER DAY
     Route: 048
     Dates: start: 20041126, end: 20050103
  3. CEFTAZIDIME [Suspect]
     Indication: INFECTION
     Dosage: 3G PER DAY
     Route: 042
     Dates: start: 20041228, end: 20050103
  4. OFLOCET [Suspect]
     Indication: INFECTION
     Dosage: 400MG PER DAY
     Route: 048
     Dates: start: 20050103, end: 20050110
  5. THALIDOMIDE [Concomitant]
     Route: 065
     Dates: start: 20050101, end: 20050108
  6. TOPALGIC ( FRANCE ) [Concomitant]
     Indication: PAIN
     Dosage: 150MG PER DAY
     Route: 048
     Dates: start: 20041230, end: 20050105
  7. ACETAMINOPHEN [Concomitant]
     Indication: PAIN
     Dosage: 3G PER DAY
     Route: 048
     Dates: start: 20041227, end: 20050105
  8. AMIKACIN SULFATE [Concomitant]
     Indication: INJECTION
     Dosage: 750MG PER DAY
     Route: 042
     Dates: start: 20041228, end: 20050101

REACTIONS (3)
  - AGRANULOCYTOSIS [None]
  - BACTERIAL SEPSIS [None]
  - FEBRILE BONE MARROW APLASIA [None]
